FAERS Safety Report 5552986-X (Version None)
Quarter: 2007Q4

REPORT INFORMATION
  Report Type: 
  Country: None (occurrence: None)
  Receive Date: 20071207
  Receipt Date: 20071130
  Transmission Date: 20080405
  Serious: Yes (Other)
  Sender: FDA-Public Use
  Company Number: CHPA2007US13101

PATIENT
  Sex: Female

DRUGS (1)
  1. MAALOX TOTAL STOMACH RELIEF (NCH)(BISMUTH SUBSALICYLATE) SUSPENSION [Suspect]
     Indication: STOMACH DISCOMFORT
     Dosage: 12 OZ OVER 8 HOURS, ORAL
     Route: 048
     Dates: start: 20071129, end: 20071129

REACTIONS (4)
  - MEDICATION ERROR [None]
  - OVERDOSE [None]
  - TINNITUS [None]
  - UNEVALUABLE EVENT [None]
